FAERS Safety Report 7225341-4 (Version None)
Quarter: 2011Q1

REPORT INFORMATION
  Report Type: 
  Country: None (occurrence: None)
  Receive Date: 20110113
  Receipt Date: 20110105
  Transmission Date: 20110831
  Serious: Yes (Other)
  Sender: FDA-Public Use
  Company Number: AR-JNJFOC-20110102676

PATIENT
  Age: 34 Year
  Sex: Female

DRUGS (2)
  1. TOPAMAC [Suspect]
     Indication: ILL-DEFINED DISORDER
     Route: 048
  2. UNKNOWN MEDICATION [Concomitant]
     Indication: PAIN
     Dosage: AS NECESSARY
     Route: 054

REACTIONS (1)
  - HEPATITIS TOXIC [None]
